FAERS Safety Report 13905054 (Version 14)
Quarter: 2018Q4

REPORT INFORMATION
  Report Type: Report from Study
  Country: US (occurrence: US)
  Receive Date: 20170825
  Receipt Date: 20181013
  Transmission Date: 20190204
  Serious: Yes (Other)
  Sender: FDA-Public Use
  Company Number: US-TEVA-800096USA

PATIENT
  Age: 24 Year
  Sex: Male

DRUGS (17)
  1. CLOZAPINE TEVA [Suspect]
     Active Substance: CLOZAPINE
     Route: 048
  2. FUROSEMIDE. [Concomitant]
     Active Substance: FUROSEMIDE
  3. VITAMIN D3 [Concomitant]
     Active Substance: CHOLECALCIFEROL
     Dosage: 1000 UNITS
  4. DOCUSATE [Concomitant]
     Active Substance: DOCUSATE
  5. LEVOTHYROXINE. [Concomitant]
     Active Substance: LEVOTHYROXINE
  6. PILOCARPINE. [Concomitant]
     Active Substance: PILOCARPINE
  7. PROVENTIL HFA [Concomitant]
     Active Substance: ALBUTEROL SULFATE
  8. HALOPERIDOL. [Concomitant]
     Active Substance: HALOPERIDOL
  9. METOPROLOL ER [Concomitant]
     Active Substance: METOPROLOL SUCCINATE
  10. SPIRONOLACTONE. [Concomitant]
     Active Substance: SPIRONOLACTONE
  11. DESMOPRESSIN [Concomitant]
     Active Substance: DESMOPRESSIN
  12. CLOZAPINE TEVA [Suspect]
     Active Substance: CLOZAPINE
     Route: 048
  13. ASA [Concomitant]
     Active Substance: ASPIRIN
  14. DIVALPROEX DR [Concomitant]
     Active Substance: DIVALPROEX SODIUM
  15. LISINOPRIL. [Concomitant]
     Active Substance: LISINOPRIL
  16. CARBAMAZEPINE. [Concomitant]
     Active Substance: CARBAMAZEPINE
  17. CLOZAPINE TEVA [Suspect]
     Active Substance: CLOZAPINE
     Route: 048

REACTIONS (1)
  - Granulocytopenia [Unknown]

NARRATIVE: CASE EVENT DATE: 20180927
